FAERS Safety Report 8814451 (Version 1)
Quarter: 2012Q4

REPORT INFORMATION
  Report Type: Spontaneous
  Country: US (occurrence: None)
  Receive Date: 20120925
  Receipt Date: 20120925
  Transmission Date: 20130627
  Serious: Yes (Other)
  Sender: FDA-Public Use
  Company Number: 2012HGS-003928

PATIENT
  Age: 63 Year
  Sex: Female
  Weight: 105.69 kg

DRUGS (1)
  1. BELIMUMAB [Suspect]
     Dosage: 1 in 28 D, Intravenous drip
     Route: 041
     Dates: start: 20050818

REACTIONS (1)
  - Breast cancer [None]
